FAERS Safety Report 13273644 (Version 2)
Quarter: 2017Q2

REPORT INFORMATION
  Report Type: Spontaneous
  Country: DE (occurrence: DE)
  Receive Date: 20170227
  Receipt Date: 20170602
  Transmission Date: 20170830
  Serious: Yes (Other)
  Sender: FDA-Public Use
  Company Number: DE-BAYER-2017-035552

PATIENT
  Age: 29 Year
  Sex: Female
  Weight: 53 kg

DRUGS (2)
  1. CIPROFLOXACIN. [Suspect]
     Active Substance: CIPROFLOXACIN
     Dosage: 100 MG, UNK
     Dates: start: 20150330, end: 20150402
  2. MAXIM [Concomitant]
     Active Substance: DIENOGEST\ETHINYL ESTRADIOL
     Indication: ORAL CONTRACEPTION
     Dosage: UNK
     Dates: start: 201502, end: 201504

REACTIONS (11)
  - Tremor [Unknown]
  - Angina pectoris [Unknown]
  - Dyspnoea [Unknown]
  - Restlessness [Unknown]
  - Insomnia [Unknown]
  - Suicidal ideation [Unknown]
  - Anxiety [Unknown]
  - Asthenia [Unknown]
  - Tendonitis [Unknown]
  - Depression [Unknown]
  - Myositis [Unknown]

NARRATIVE: CASE EVENT DATE: 20150330
